FAERS Safety Report 25316616 (Version 1)
Quarter: 2025Q2

REPORT INFORMATION
  Report Type: Spontaneous
  Country: US (occurrence: US)
  Receive Date: 20250515
  Receipt Date: 20250515
  Transmission Date: 20250717
  Serious: Yes (Death, Hospitalization, Other)
  Sender: EMCURE PHARMACEUTICALS LTD
  Company Number: US-AVET LIFESCIENCES LTD-2025-AVET-000157

PATIENT
  Age: 33 Year
  Sex: Female

DRUGS (4)
  1. VANCOMYCIN HYDROCHLORIDE [Suspect]
     Active Substance: VANCOMYCIN HYDROCHLORIDE
     Indication: Atypical pneumonia
     Dosage: 15 MG/KG, 1 DOSE PER 12HR ADMINISTERED FOR 7 DAYS
     Route: 065
  2. CEFTRIAXONE [Suspect]
     Active Substance: CEFTRIAXONE
     Indication: Pneumonia
     Route: 065
  3. AZITHROMYCIN [Suspect]
     Active Substance: AZITHROMYCIN
     Indication: Atypical pneumonia
     Dosage: 500 MILLIGRAM, 1 DOSE PER 1D
     Route: 065
  4. DEXAMETHASONE [Suspect]
     Active Substance: DEXAMETHASONE
     Indication: Atypical pneumonia
     Dosage: 6 MILLIGRAM, 1 DOSE PER 1D (E 6 MG/DAY FOR FIVE DAYS)
     Route: 065

REACTIONS (3)
  - Disseminated tuberculosis [Fatal]
  - Pulmonary sarcoidosis [Unknown]
  - Exposure during pregnancy [Unknown]
